FAERS Safety Report 13068169 (Version 1)
Quarter: 2016Q4

REPORT INFORMATION
  Report Type: Spontaneous
  Country: US (occurrence: US)
  Receive Date: 20161227
  Receipt Date: 20161227
  Transmission Date: 20170207
  Serious: Yes (Disabling)
  Sender: FDA-Public Use
  Company Number: None

PATIENT
  Age: 43 Year
  Sex: Female
  Weight: 61.29 kg

DRUGS (9)
  1. EMERGENCY ASTHMA INHALER [Concomitant]
  2. COUGH SYRUP [Concomitant]
     Active Substance: DEXTROMETHORPHAN HYDROBROMIDE\GUAIFENESIN
  3. MELATONIN [Concomitant]
     Active Substance: MELATONIN
  4. SINGULAIR [Concomitant]
     Active Substance: MONTELUKAST SODIUM
  5. FLONASE [Concomitant]
     Active Substance: FLUTICASONE PROPIONATE
  6. LO LO ESTRIN [Concomitant]
  7. MIRENA [Suspect]
     Active Substance: LEVONORGESTREL
  8. ADVIL [Concomitant]
     Active Substance: IBUPROFEN
  9. TYLENOL [Concomitant]
     Active Substance: ACETAMINOPHEN

REACTIONS (11)
  - Decreased appetite [None]
  - Diarrhoea [None]
  - Nasopharyngitis [None]
  - Cough [None]
  - Arthralgia [None]
  - Energy increased [None]
  - Gastrooesophageal reflux disease [None]
  - Autoimmune disorder [None]
  - Insomnia [None]
  - Gastrointestinal tract irritation [None]
  - Fatigue [None]

NARRATIVE: CASE EVENT DATE: 20161206
